FAERS Safety Report 12337931 (Version 1)
Quarter: 2016Q2

REPORT INFORMATION
  Report Type: Spontaneous
  Country: MX (occurrence: MX)
  Receive Date: 20160505
  Receipt Date: 20160505
  Transmission Date: 20160815
  Serious: Yes (Other)
  Sender: FDA-Public Use
  Company Number: MX-SA-2016SA084225

PATIENT
  Age: 68 Year
  Sex: Male
  Weight: 65 kg

DRUGS (8)
  1. LANTUS SOLOSTAR [Suspect]
     Active Substance: INSULIN GLARGINE
     Indication: DIABETES MELLITUS
     Route: 058
     Dates: start: 2011
  2. SOLOSTAR [Concomitant]
     Active Substance: DEVICE
     Dates: start: 2011
  3. CYMBALTA [Concomitant]
     Active Substance: DULOXETINE HYDROCHLORIDE
     Dosage: 60 MG
     Route: 048
     Dates: start: 2011
  4. ANGIOTROFIN [Concomitant]
     Active Substance: DILTIAZEM HYDROCHLORIDE
     Dosage: 180 MG
     Route: 048
     Dates: start: 2011
  5. TRADJENTA [Concomitant]
     Active Substance: LINAGLIPTIN
     Indication: DIABETES MELLITUS
     Route: 048
     Dates: start: 2011
  6. COPLAVIX [Suspect]
     Active Substance: ASPIRIN\CLOPIDOGREL BISULFATE
     Route: 048
     Dates: start: 2011
  7. MICCIL [Concomitant]
     Route: 048
     Dates: start: 2011
  8. THOREVA [Concomitant]
     Dosage: 20 MG
     Route: 048
     Dates: start: 2011

REACTIONS (2)
  - Chronic kidney disease [Not Recovered/Not Resolved]
  - Gastroenteritis [Not Recovered/Not Resolved]

NARRATIVE: CASE EVENT DATE: 2013
